FAERS Safety Report 8378188-X (Version None)
Quarter: 2012Q2

REPORT INFORMATION
  Report Type: 
  Country: None (occurrence: None)
  Receive Date: 20120522
  Receipt Date: 20120515
  Transmission Date: 20120825
  Serious: No
  Sender: FDA-Public Use
  Company Number: US-PFIZER INC-2012081795

PATIENT
  Age: 57 Year
  Sex: Female
  Weight: 58.957 kg

DRUGS (7)
  1. FLEXERIL [Suspect]
     Indication: MUSCLE SPASMS
     Dosage: 10 MG, AS NEEDED
  2. VENLAFAXINE HYDROCHLORIDE [Concomitant]
     Indication: DEPRESSION
     Dosage: 75 MG, DAILY
     Dates: start: 20110901, end: 20120301
  3. ASPIRIN [Suspect]
     Indication: PAIN IN EXTREMITY
     Dosage: 300 MG, DAILY
  4. ELAVIL [Concomitant]
     Indication: INSOMNIA
     Dosage: 10 MG, DAILY
     Dates: start: 19930101
  5. MOTRIN [Suspect]
     Dosage: 200 MG, UNK
  6. XANAX [Concomitant]
     Dosage: 0.25 MG,ONCE EVERY TWO WEEKS
  7. MOTRIN [Suspect]
     Indication: INFLAMMATION
     Dosage: 400 MG, AS NEEDED

REACTIONS (1)
  - DRUG INEFFECTIVE [None]
